FAERS Safety Report 24868038 (Version 3)
Quarter: 2025Q1

REPORT INFORMATION
  Report Type: Report from Study
  Country: CO (occurrence: CO)
  Receive Date: 20250121
  Receipt Date: 20250324
  Transmission Date: 20250408
  Serious: Yes (Death, Hospitalization, Other)
  Sender: HELSINN HEALTHCARE
  Company Number: CO-HBP-2025CO031588

PATIENT
  Age: 88 Year
  Sex: Female

DRUGS (2)
  1. MECHLORETHAMINE HYDROCHLORIDE [Suspect]
     Active Substance: MECHLORETHAMINE HYDROCHLORIDE
     Indication: Cutaneous T-cell lymphoma stage II
     Dosage: UNK, QD
     Route: 061
     Dates: start: 20241105, end: 20250104
  2. CLOBETASOL PROPIONATE [Concomitant]
     Active Substance: CLOBETASOL PROPIONATE
     Indication: Cutaneous T-cell lymphoma stage II
     Dosage: UNK, QD
     Dates: end: 20250104

REACTIONS (3)
  - Cardio-respiratory arrest [Fatal]
  - Oxygen saturation decreased [Unknown]
  - Off label use [Unknown]

NARRATIVE: CASE EVENT DATE: 20250101
